FAERS Safety Report 9299072 (Version 3)
Quarter: 2013Q3

REPORT INFORMATION
  Report Type: Report from Study
  Country: JP (occurrence: JP)
  Receive Date: 20130520
  Receipt Date: 20130904
  Transmission Date: 20140515
  Serious: Yes (Hospitalization, Other)
  Sender: FDA-Public Use
  Company Number: JP-PFIZER INC-2013149795

PATIENT
  Age: 83 Year
  Sex: Male

DRUGS (2)
  1. ZITHROMAC [Suspect]
     Indication: PNEUMONIA
     Dosage: 500 MG, 1X/DAY
     Route: 041
     Dates: start: 20130109, end: 20130110
  2. SULBACILLIN [Suspect]
     Indication: PNEUMONIA
     Dosage: 3 G, 3X/DAY
     Route: 041
     Dates: start: 20130109, end: 20130122

REACTIONS (1)
  - Cardiac failure chronic [Recovered/Resolved]
